FAERS Safety Report 6427802-4 (Version None)
Quarter: 2009Q4

REPORT INFORMATION
  Report Type: 
  Country: None (occurrence: None)
  Receive Date: 20091104
  Receipt Date: 20091104
  Transmission Date: 20100525
  Serious: No
  Sender: FDA-Public Use
  Company Number: None

PATIENT
  Age: 83 Year
  Sex: Male
  Weight: 72.5755 kg

DRUGS (3)
  1. TRAMADOL HCL [Suspect]
     Dosage: 1 TABLET 4/DAY
     Dates: start: 20090619, end: 20090710
  2. TRAMADOL HCL [Suspect]
     Dosage: 1 TABLET 4/DAY
     Dates: start: 20090713, end: 20091012
  3. TRAMADOL HCL [Suspect]
     Dosage: 1 TABLET 4/DAY
     Dates: start: 20091015

REACTIONS (1)
  - INSOMNIA [None]
